FAERS Safety Report 5402068-2 (Version None)
Quarter: 2007Q3

REPORT INFORMATION
  Report Type: 
  Country: None (occurrence: None)
  Receive Date: 20070727
  Receipt Date: 20050727
  Transmission Date: 20080115
  Serious: Yes (Hospitalization)
  Sender: FDA-Public Use
  Company Number: THYM-10549

PATIENT
  Age: 47 Year
  Sex: Female
  Weight: 59.9 kg

DRUGS (10)
  1. THYMOGLOBULIN [Suspect]
     Indication: LIVER TRANSPLANT
     Dosage: 1.5 MG/KG QD IV
     Route: 042
     Dates: start: 20050412, end: 20050416
  2. RAPAMUNE [Concomitant]
  3. PROGRAF [Concomitant]
  4. PREDNISONE [Concomitant]
  5. CELLCEPT [Concomitant]
  6. BACTRIM [Concomitant]
  7. NYSTATIN [Concomitant]
  8. VALCYTE [Concomitant]
  9. PREVACID [Concomitant]
  10. DARVON [Concomitant]

REACTIONS (4)
  - ALANINE AMINOTRANSFERASE INCREASED [None]
  - ASPARTATE AMINOTRANSFERASE INCREASED [None]
  - BLOOD ALKALINE PHOSPHATASE INCREASED [None]
  - BLOOD BILIRUBIN INCREASED [None]
